FAERS Safety Report 10658623 (Version 5)
Quarter: 2015Q2

REPORT INFORMATION
  Report Type: Spontaneous
  Country: US (occurrence: US)
  Receive Date: 20141217
  Receipt Date: 20150508
  Transmission Date: 20150821
  Serious: Yes (Other)
  Sender: FDA-Public Use
  Company Number: US-JNJFOC-20140922193

PATIENT
  Sex: Male

DRUGS (1)
  1. LEVAQUIN [Suspect]
     Active Substance: LEVOFLOXACIN
     Indication: LUNG INFECTION
     Route: 048
     Dates: start: 201209

REACTIONS (4)
  - Tendon rupture [Unknown]
  - Tendonitis [Unknown]
  - Rotator cuff syndrome [Recovered/Resolved]
  - Rotator cuff syndrome [Unknown]
